FAERS Safety Report 19873383 (Version 1)
Quarter: 2021Q3

REPORT INFORMATION
  Report Type: Spontaneous
  Country: US (occurrence: US)
  Receive Date: 20210923
  Receipt Date: 20210923
  Transmission Date: 20211014
  Serious: Yes (Other)
  Sender: FDA-Public Use
  Company Number: US-TEVA-2021-US-1955585

PATIENT
  Age: 29 Year
  Sex: Male
  Weight: 65 kg

DRUGS (1)
  1. DISULFIRAM. [Suspect]
     Active Substance: DISULFIRAM
     Indication: LYME DISEASE
     Dosage: 7.7 MG/KG DAILY; 7.7 MG/KG/DAY FOR 5 MONTHS
     Route: 065

REACTIONS (4)
  - Fatigue [Unknown]
  - Off label use [Unknown]
  - Neuropathy peripheral [Unknown]
  - Arthralgia [Unknown]
